FAERS Safety Report 6792888-4 (Version None)
Quarter: 2010Q2

REPORT INFORMATION
  Report Type: 
  Country: None (occurrence: None)
  Receive Date: 20100624
  Receipt Date: 20081107
  Transmission Date: 20101027
  Serious: No
  Sender: FDA-Public Use
  Company Number: US-PFIZER INC-2008088303

PATIENT
  Sex: Male
  Weight: 79.38 kg

DRUGS (3)
  1. GEODON [Suspect]
     Dates: start: 20081016
  2. SEROQUEL [Concomitant]
  3. WELLBUTRIN XL [Concomitant]

REACTIONS (4)
  - AGITATION [None]
  - ANXIETY [None]
  - INSOMNIA [None]
  - RESTLESSNESS [None]
